FAERS Safety Report 4514818-8 (Version None)
Quarter: 2004Q4

REPORT INFORMATION
  Report Type: 
  Country: None (occurrence: None)
  Receive Date: 20041129
  Receipt Date: 20041129
  Transmission Date: 20050328
  Serious: Yes (Death)
  Sender: FDA-Public Use
  Company Number: None

PATIENT
  Age: 32 Year
  Sex: Male
  Weight: 79 kg

DRUGS (10)
  1. BLEOMYCIN [Suspect]
     Indication: HODGKIN'S DISEASE
     Dosage: 6 CYCLES
     Dates: start: 20040101, end: 20040801
  2. PREDNISONE [Concomitant]
  3. FENTANYL [Concomitant]
  4. ENDOCET [Concomitant]
  5. LORATADINE [Concomitant]
  6. SINAMET [Concomitant]
  7. NEURONTIN [Concomitant]
  8. ZANTAC [Concomitant]
  9. ZOLOFT [Concomitant]
  10. ALBUTEROL [Concomitant]

REACTIONS (3)
  - ACUTE RESPIRATORY DISTRESS SYNDROME [None]
  - PLEURITIC PAIN [None]
  - THERAPEUTIC AGENT TOXICITY [None]
